FAERS Safety Report 20658262 (Version 1)
Quarter: 2022Q1

REPORT INFORMATION
  Report Type: Spontaneous
  Country: US (occurrence: None)
  Receive Date: 20220330
  Receipt Date: 20220330
  Transmission Date: 20220423
  Serious: Yes (Hospitalization)
  Sender: FDA-Public Use
  Company Number: None

PATIENT
  Sex: Female

DRUGS (11)
  1. SIMPONI [Suspect]
     Active Substance: GOLIMUMAB
     Indication: Rheumatoid arthritis
     Dosage: 50/0.5 MG/ML??INJECT 50 MG UNDER THE SKIN (SUBCUTANEOUS  INJECTION) EVERY MONTH
     Route: 058
     Dates: start: 20171027
  2. MINERALS\VITAMINS [Concomitant]
     Active Substance: MINERALS\VITAMINS
  3. ENOXAPARIN [Concomitant]
     Active Substance: ENOXAPARIN
  4. FERROUS SULFATE [Concomitant]
     Active Substance: FERROUS SULFATE
  5. FOLIC ACID [Concomitant]
     Active Substance: FOLIC ACID
  6. LEFLUNOMIDE [Concomitant]
     Active Substance: LEFLUNOMIDE
  7. NABUMETONE [Concomitant]
     Active Substance: NABUMETONE
  8. OXYCODONE AND ACETAMINOPHEN [Concomitant]
     Active Substance: ACETAMINOPHEN\OXYCODONE HYDROCHLORIDE
  9. PROLIA [Concomitant]
     Active Substance: DENOSUMAB
  10. STOOL SOFTNR [Concomitant]
  11. VITAMIN B12 [Concomitant]
     Active Substance: CYANOCOBALAMIN

REACTIONS (2)
  - Spinal operation [None]
  - Therapy interrupted [None]
